FAERS Safety Report 10714870 (Version 3)
Quarter: 2015Q2

REPORT INFORMATION
  Report Type: Report from Study
  Country: US (occurrence: US)
  Receive Date: 20150115
  Receipt Date: 20150508
  Transmission Date: 20150821
  Serious: Yes (Other)
  Sender: FDA-Public Use
  Company Number: GXBR2015US000509

PATIENT
  Age: 59 Year
  Sex: Female

DRUGS (1)
  1. TACROLIMUS. [Suspect]
     Active Substance: TACROLIMUS
     Indication: BONE MARROW TRANSPLANT
     Dosage: 0.5 MG, QD
     Route: 048
     Dates: start: 201005

REACTIONS (18)
  - Arthralgia [Unknown]
  - Oral mucosal erythema [Recovering/Resolving]
  - Visual impairment [Recovering/Resolving]
  - Eye pain [Recovered/Resolved]
  - Sneezing [Not Recovered/Not Resolved]
  - Joint swelling [Recovered/Resolved]
  - Joint stiffness [Unknown]
  - Graft versus host disease [Recovering/Resolving]
  - Oral mucosal hypertrophy [Recovering/Resolving]
  - Dry skin [Recovering/Resolving]
  - Bronchitis [Recovered/Resolved]
  - Macular hole [Recovering/Resolving]
  - Headache [Recovered/Resolved]
  - Lacrimation increased [Not Recovered/Not Resolved]
  - Aptyalism [Recovering/Resolving]
  - Hypersensitivity [Not Recovered/Not Resolved]
  - Gait disturbance [Recovered/Resolved]
  - Rhinorrhoea [Not Recovered/Not Resolved]

NARRATIVE: CASE EVENT DATE: 20140927
